FAERS Safety Report 6992472-3 (Version None)
Quarter: 2010Q3

REPORT INFORMATION
  Report Type: 
  Country: None (occurrence: None)
  Receive Date: 20100917
  Receipt Date: 20100913
  Transmission Date: 20110219
  Serious: Yes (Death, Other)
  Sender: FDA-Public Use
  Company Number: PHHY2010US60947

PATIENT
  Sex: Female

DRUGS (3)
  1. EXJADE [Suspect]
     Dosage: 500 MG, TID
     Route: 048
  2. PLATELETS [Concomitant]
  3. RED BLOOD CELLS [Concomitant]
     Dosage: UNK

REACTIONS (3)
  - BONE MARROW FAILURE [None]
  - INFECTION [None]
  - NON-HODGKIN'S LYMPHOMA [None]
